FAERS Safety Report 11896400 (Version 1)
Quarter: 2016Q1

REPORT INFORMATION
  Report Type: Spontaneous
  Country: AU (occurrence: AU)
  Receive Date: 20160107
  Receipt Date: 20160107
  Transmission Date: 20160526
  Serious: Yes (Other)
  Sender: FDA-Public Use
  Company Number: AU-ALEXION PHARMACEUTICALS INC-A201505465

PATIENT
  Sex: Male

DRUGS (1)
  1. SOLIRIS [Suspect]
     Active Substance: ECULIZUMAB
     Indication: HAEMOLYTIC URAEMIC SYNDROME
     Dosage: UNK, SINGLE
     Route: 042
     Dates: start: 20151210, end: 20151210

REACTIONS (2)
  - Thrombotic microangiopathy [Unknown]
  - IgA nephropathy [Unknown]

NARRATIVE: CASE EVENT DATE: 201512
